FAERS Safety Report 25188206 (Version 2)
Quarter: 2025Q2

REPORT INFORMATION
  Report Type: Spontaneous
  Country: DE (occurrence: DE)
  Receive Date: 20250411
  Receipt Date: 20250417
  Transmission Date: 20250717
  Serious: Yes (Death, Hospitalization, Other)
  Sender: ASTELLAS
  Company Number: DE-ASTELLAS-2025-AER-012638

PATIENT
  Age: 67 Year
  Sex: Male

DRUGS (2)
  1. PADCEV [Suspect]
     Active Substance: ENFORTUMAB VEDOTIN-EJFV
     Indication: Bladder transitional cell carcinoma
     Route: 042
     Dates: start: 20241203, end: 20250226
  2. PEMBROLIZUMAB [Concomitant]
     Active Substance: PEMBROLIZUMAB
     Indication: Product used for unknown indication
     Route: 065

REACTIONS (8)
  - Rash [Fatal]
  - Dermatitis bullous [Fatal]
  - Pyrexia [Fatal]
  - Diarrhoea [Fatal]
  - Toxic epidermal necrolysis [Fatal]
  - Septic shock [Fatal]
  - Neutropenia [Unknown]
  - C-reactive protein increased [Unknown]

NARRATIVE: CASE EVENT DATE: 20250224
